FAERS Safety Report 6871855-6 (Version None)
Quarter: 2010Q3

REPORT INFORMATION
  Report Type: 
  Country: None (occurrence: None)
  Receive Date: 20100723
  Receipt Date: 20100719
  Transmission Date: 20110219
  Serious: Yes (Hospitalization)
  Sender: FDA-Public Use
  Company Number: FR-BRISTOL-MYERS SQUIBB COMPANY-15201817

PATIENT
  Age: 73 Year
  Sex: Male

DRUGS (10)
  1. PRAVADUAL TABS 81 MG/40 MG [Suspect]
     Dosage: 1 DF=81 MG/40 MG
     Route: 048
  2. PLAVIX [Suspect]
     Route: 048
  3. IBUPROFEN [Suspect]
     Route: 048
     Dates: end: 20080701
  4. LANSOPRAZOLE [Suspect]
     Route: 048
  5. DOXAZOSIN MESYLATE [Suspect]
     Route: 048
  6. DIAMICRON [Suspect]
     Route: 048
  7. DIOSMIN [Suspect]
     Route: 048
  8. SPIRIVA [Suspect]
     Route: 055
  9. TANAKAN [Suspect]
     Route: 048
  10. CIALIS [Suspect]
     Route: 048

REACTIONS (1)
  - PULMONARY FIBROSIS [None]
